FAERS Safety Report 7107471-0 (Version None)
Quarter: 2010Q4

REPORT INFORMATION
  Report Type: 
  Country: None (occurrence: None)
  Receive Date: 20101112
  Receipt Date: 20101019
  Transmission Date: 20110411
  Serious: Yes (Other)
  Sender: FDA-Public Use
  Company Number: 2010090038

PATIENT

DRUGS (2)
  1. TORSEMIDE [Suspect]
     Indication: HEART DISEASE CONGENITAL
     Dosage: SEE IMAGE
  2. ENALAPRIL MALEATE [Suspect]
     Indication: CARDIAC FAILURE

REACTIONS (3)
  - CARDIAC FAILURE [None]
  - HAEMODYNAMIC INSTABILITY [None]
  - HYPERKALAEMIA [None]
